FAERS Safety Report 26115905 (Version 2)
Quarter: 2025Q4

REPORT INFORMATION
  Report Type: Spontaneous
  Country: US (occurrence: US)
  Receive Date: 20251203
  Receipt Date: 20251222
  Transmission Date: 20260118
  Serious: Yes (Life-Threatening, Hospitalization)
  Sender: TEVA
  Company Number: US-TEVA-VS-3397195

PATIENT
  Age: 5 Month
  Sex: Male

DRUGS (2)
  1. LEVOCARNITINE [Suspect]
     Active Substance: LEVOCARNITINE
     Indication: Systemic toxicity
     Route: 065
  2. DEXTROSE [Suspect]
     Active Substance: DEXTROSE MONOHYDRATE
     Indication: Systemic toxicity
     Route: 065

REACTIONS (1)
  - Drug ineffective [Unknown]
